FAERS Safety Report 6135954-9 (Version None)
Quarter: 2009Q1

REPORT INFORMATION
  Report Type: 
  Country: None (occurrence: None)
  Receive Date: 20090329
  Receipt Date: 20090127
  Transmission Date: 20090719
  Serious: No
  Sender: FDA-Public Use
  Company Number: US-BAUSCH-2009BL000400

PATIENT
  Sex: Female

DRUGS (4)
  1. ALAWAY [Suspect]
     Indication: EYE ALLERGY
     Route: 047
     Dates: start: 20090120
  2. ALAWAY [Suspect]
     Indication: ERYTHEMA OF EYELID
     Route: 047
     Dates: start: 20090120
  3. ALAWAY [Suspect]
     Indication: EYELID OEDEMA
     Route: 047
     Dates: start: 20090120
  4. PATADAY [Concomitant]
     Indication: KERATOCONJUNCTIVITIS SICCA
     Route: 047

REACTIONS (2)
  - DRUG EFFECT DECREASED [None]
  - DRUG INEFFECTIVE FOR UNAPPROVED INDICATION [None]
